FAERS Safety Report 23280133 (Version 1)
Quarter: 2023Q4

REPORT INFORMATION
  Report Type: Spontaneous
  Country: US (occurrence: US)
  Receive Date: 20231210
  Receipt Date: 20231210
  Transmission Date: 20240110
  Serious: Yes (Other)
  Sender: FDA-Public Use
  Company Number: US-LUNDBECK-DKLU3071227

PATIENT
  Age: 23 Month
  Sex: Male
  Weight: 13.7 kg

DRUGS (4)
  1. SABRIL [Suspect]
     Active Substance: VIGABATRIN
     Indication: Infantile spasms
     Route: 065
  2. SABRIL [Suspect]
     Active Substance: VIGABATRIN
     Route: 065
  3. VIGABATRIN [Suspect]
     Active Substance: VIGABATRIN
     Indication: Infantile spasms
     Route: 065
  4. VIGABATRIN [Suspect]
     Active Substance: VIGABATRIN
     Route: 065

REACTIONS (4)
  - Seizure [Unknown]
  - Screaming [Unknown]
  - Recalled product administered [Unknown]
  - Product contamination [Unknown]
